FAERS Safety Report 23182853 (Version 1)
Quarter: 2023Q4

REPORT INFORMATION
  Report Type: Spontaneous
  Country: US (occurrence: US)
  Receive Date: 20231114
  Receipt Date: 20231114
  Transmission Date: 20240109
  Serious: No
  Sender: FDA-Public Use
  Company Number: US-TEVA-2023-US-2940663

PATIENT
  Age: 42 Year
  Sex: Female

DRUGS (1)
  1. AJOVY [Suspect]
     Active Substance: FREMANEZUMAB-VFRM
     Indication: Migraine with aura
     Dosage: 225 MG PER 1.5 ML MONTHLY
     Route: 065

REACTIONS (3)
  - Anxiety [Unknown]
  - Emergency care [Unknown]
  - Insomnia [Unknown]

NARRATIVE: CASE EVENT DATE: 20230701
